FAERS Safety Report 15248781 (Version 1)
Quarter: 2018Q3

REPORT INFORMATION
  Report Type: Spontaneous
  Country: US (occurrence: US)
  Receive Date: 20180714
  Receipt Date: 20180714
  Transmission Date: 20181010
  Serious: Yes (Hospitalization)
  Sender: FDA-Public Use
  Company Number: None

PATIENT
  Age: 51 Year
  Sex: Female
  Weight: 97.5 kg

DRUGS (1)
  1. ASPIRIN. [Suspect]
     Active Substance: ASPIRIN
     Dates: end: 20180704

REACTIONS (7)
  - Colitis [None]
  - Blood glucose increased [None]
  - Abdominal pain [None]
  - Gastrointestinal haemorrhage [None]
  - Chills [None]
  - Diarrhoea haemorrhagic [None]
  - White blood cell count increased [None]

NARRATIVE: CASE EVENT DATE: 20180705
